FAERS Safety Report 6795232-1 (Version None)
Quarter: 2010Q2

REPORT INFORMATION
  Report Type: 
  Country: None (occurrence: None)
  Receive Date: 20100624
  Receipt Date: 20100624
  Transmission Date: 20101027
  Serious: No
  Sender: FDA-Public Use
  Company Number: None

PATIENT
  Sex: Female
  Weight: 121.1104 kg

DRUGS (5)
  1. ZESTRIL [Suspect]
  2. CARDIZEM CD [Suspect]
  3. ATENOLOL [Concomitant]
  4. NORVASC [Concomitant]
  5. HYDROCHLOROTHIAZIDE [Concomitant]

REACTIONS (1)
  - DRUG INEFFECTIVE [None]
